FAERS Safety Report 25717720 (Version 1)
Quarter: 2025Q3

REPORT INFORMATION
  Report Type: Report from Study
  Country: CA (occurrence: CA)
  Receive Date: 20250822
  Receipt Date: 20250822
  Transmission Date: 20251021
  Serious: Yes (Death, Hospitalization, Other)
  Sender: TAKEDA
  Company Number: CA-TAKEDA-2025TUS066386

PATIENT
  Sex: Female

DRUGS (2)
  1. FRUQUINTINIB [Suspect]
     Active Substance: FRUQUINTINIB
     Indication: Colorectal cancer metastatic
  2. LINAGLIPTIN [Concomitant]
     Active Substance: LINAGLIPTIN

REACTIONS (5)
  - Hepatic failure [Fatal]
  - Quality of life decreased [Unknown]
  - Mental fatigue [Unknown]
  - Somnolence [Unknown]
  - Fatigue [Unknown]
